FAERS Safety Report 8514155-0 (Version None)
Quarter: 2012Q2

REPORT INFORMATION
  Report Type: 
  Country: None (occurrence: None)
  Receive Date: 20120406
  Receipt Date: 20110929
  Transmission Date: 20120825
  Serious: Yes (Hospitalization)
  Sender: FDA-Public Use
  Company Number: US-CYPR-2011-000090

PATIENT
  Sex: Male
  Weight: 104 kg

DRUGS (22)
  1. ASPIRIN [Suspect]
     Indication: CORONARY ARTERY DISEASE
     Dosage: (81 MG ORAL)
     Route: 048
     Dates: start: 20091007
  2. DAYPRO [Concomitant]
  3. SINGULAIR [Concomitant]
  4. POTASSIUM CHLORIDE [Concomitant]
  5. HUMIRA [Concomitant]
  6. CLOPIDOGREL [Suspect]
     Indication: ANTIPLATELET THERAPY
     Dosage: (75 MG ORAL)
     Route: 048
     Dates: start: 20101013
  7. LANOXIN [Concomitant]
  8. LASIX [Concomitant]
  9. NEURONTIN [Concomitant]
  10. LEXAPRO [Concomitant]
  11. NITROGLYCERIN [Concomitant]
  12. CYPHER STENT [Concomitant]
  13. TRICOR [Concomitant]
  14. NORFLEX [Concomitant]
  15. ULTRAM [Concomitant]
  16. BENICAR [Concomitant]
  17. ACTOS [Concomitant]
  18. METFORMIN HYDROCHLORIDE [Concomitant]
  19. ZETIA [Concomitant]
  20. ACEBUTOLOL [Concomitant]
  21. AMARYL [Concomitant]
  22. CLONAZEPAM [Concomitant]

REACTIONS (1)
  - BACK PAIN [None]
